FAERS Safety Report 23606799 (Version 8)
Quarter: 2024Q3

REPORT INFORMATION
  Report Type: Report from Study
  Country: CA (occurrence: CA)
  Receive Date: 20240307
  Receipt Date: 20240925
  Transmission Date: 20241017
  Serious: Yes (Death, Hospitalization, Other)
  Sender: ABBVIE
  Company Number: CA-ABBVIE-5669316

PATIENT
  Age: 58 Year
  Sex: Male
  Weight: 65 kg

DRUGS (12)
  1. GLECAPREVIR\PIBRENTASVIR [Suspect]
     Active Substance: GLECAPREVIR\PIBRENTASVIR
     Indication: Chronic hepatitis C
     Dosage: FIRST ADMIN DATE: 2024
     Route: 048
  2. GLECAPREVIR\PIBRENTASVIR [Suspect]
     Active Substance: GLECAPREVIR\PIBRENTASVIR
     Indication: Chronic hepatitis C
     Dosage: TIME INTERVAL: 0.33333333 DAYS: 100/40 MG TABLETS?LAST ADMIN DATE: 2024?THREE TIMES PER DAY
     Route: 048
     Dates: start: 20240123
  3. MAGNESIUM [Concomitant]
     Active Substance: MAGNESIUM
     Indication: Product used for unknown indication
     Route: 048
     Dates: start: 2023
  4. ALPROZAM [Concomitant]
     Indication: Product used for unknown indication
     Dosage: TIME INTERVAL: 0.33333333 DAYS: 0.5 MG ?1 TABLET THRICE A DAY
     Route: 048
     Dates: start: 2023
  5. PROBENECID [Concomitant]
     Active Substance: PROBENECID
     Indication: Product used for unknown indication
     Dosage: 2 TABLETS TWICE A DAY
     Route: 048
     Dates: start: 2023
  6. FUROSEMIDE [Concomitant]
     Active Substance: FUROSEMIDE
     Indication: Product used for unknown indication
     Dosage: 80 MG PILL
     Route: 048
     Dates: start: 2023
  7. CEFAZINE [Concomitant]
     Indication: Product used for unknown indication
     Route: 042
  8. SUBOXONE [Concomitant]
     Active Substance: BUPRENORPHINE HYDROCHLORIDE\NALOXONE HYDROCHLORIDE
     Indication: Product used for unknown indication
     Dosage: 3/2 MG
     Route: 060
     Dates: start: 2023
  9. SYNTHROID [Concomitant]
     Active Substance: LEVOTHYROXINE SODIUM
     Indication: Product used for unknown indication
     Route: 048
     Dates: start: 2023
  10. PANTOPRAZOLE SODIUM [Concomitant]
     Active Substance: PANTOPRAZOLE SODIUM
     Indication: Product used for unknown indication
     Route: 048
     Dates: start: 2023
  11. POTASSIUM [Concomitant]
     Active Substance: POTASSIUM
     Indication: Product used for unknown indication
     Dosage: 2 BY MOUTH
     Route: 048
     Dates: start: 2023
  12. SPIRONOLACTONE [Concomitant]
     Active Substance: SPIRONOLACTONE
     Indication: Product used for unknown indication

REACTIONS (23)
  - Cardiac ventricular thrombosis [Fatal]
  - Asthenia [Recovering/Resolving]
  - Transfusion [Unknown]
  - Malaise [Unknown]
  - Withdrawal syndrome [Recovering/Resolving]
  - Weight decreased [Recovering/Resolving]
  - Lethargy [Recovering/Resolving]
  - Sepsis [Unknown]
  - Fatigue [Recovering/Resolving]
  - Transgender operation [Unknown]
  - Cerebrovascular accident [Fatal]
  - Thrombosis [Fatal]
  - Endocarditis [Unknown]
  - Decreased appetite [Unknown]
  - Dysphagia [Unknown]
  - Urinary incontinence [Unknown]
  - C-reactive protein increased [Unknown]
  - Cerebral disorder [Unknown]
  - Chest pain [Unknown]
  - Drug withdrawal syndrome [Recovering/Resolving]
  - Urine analysis abnormal [Unknown]
  - Oedema [Unknown]
  - Cerebral infarction [Unknown]

NARRATIVE: CASE EVENT DATE: 20240101
